FAERS Safety Report 8900662 (Version 1)
Quarter: 2012Q4

REPORT INFORMATION
  Report Type: 
  Country: CA (occurrence: CA)
  Receive Date: 20121109
  Receipt Date: 20121109
  Transmission Date: 20130627
  Serious: Yes (Death, Other)
  Sender: FDA-Public Use
  Company Number: PHMT2006CA01896

PATIENT
  Sex: Male

DRUGS (10)
  1. SANDOSTATIN LAR [Suspect]
     Indication: CARCINOID TUMOUR
     Dosage: 30 mg, once a month
     Dates: start: 20050505
  2. SANDOSTATIN LAR [Suspect]
     Dosage: 40 mg every month
     Route: 030
     Dates: end: 20071024
  3. DOXAZOSIN [Concomitant]
     Dosage: UNK UKN, UNK
  4. ATORVASTATIN [Concomitant]
     Dosage: UNK UKN, UNK
  5. MODURET [Concomitant]
     Dosage: UNK UKN, UNK
  6. PANTOPRAZOLE/PANTOLOC [Concomitant]
     Dosage: UNK UKN, UNK
  7. SINGULAIR [Concomitant]
     Dosage: UNK UKN, UNK
  8. CARDURA [Concomitant]
     Dosage: UNK UKN, UNK
  9. LIPITOR [Concomitant]
     Dosage: UNK UKN, UNK
  10. XELODA [Concomitant]
     Dosage: UNK UKN, UNK
     Route: 048

REACTIONS (25)
  - Death [Fatal]
  - Hepatomegaly [Unknown]
  - Abdominal discomfort [Unknown]
  - Abdominal pain [Unknown]
  - General physical health deterioration [Unknown]
  - Blood pressure increased [Unknown]
  - Pollakiuria [Unknown]
  - Weight decreased [Unknown]
  - Muscle spasms [Unknown]
  - Malaise [Unknown]
  - Pain [Unknown]
  - Gait disturbance [Unknown]
  - Cachexia [Unknown]
  - Frequent bowel movements [Unknown]
  - Abdominal distension [Unknown]
  - Heart rate increased [Unknown]
  - Hypoglycaemia [Unknown]
  - Hyperglycaemia [Unknown]
  - Tremor [Unknown]
  - Diarrhoea [Unknown]
  - Dyspepsia [Unknown]
  - Flatulence [Unknown]
  - Injection site pain [Unknown]
  - Asthenia [Unknown]
  - Fatigue [Unknown]
